FAERS Safety Report 4297715-5 (Version None)
Quarter: 2004Q1

REPORT INFORMATION
  Report Type: 
  Country: None (occurrence: None)
  Receive Date: 20040217
  Receipt Date: 20040217
  Transmission Date: 20041129
  Serious: Yes (Hospitalization, Other)
  Sender: FDA-Public Use
  Company Number: None

PATIENT
  Age: 78 Year
  Sex: Female
  Weight: 57.6068 kg

DRUGS (1)
  1. PACERONE [Suspect]
     Indication: ARRHYTHMIA
     Dosage: 1 TABLET ONCE A DAY ORAL
     Route: 048
     Dates: start: 20030105, end: 20031220

REACTIONS (5)
  - FATIGUE [None]
  - HEADACHE [None]
  - INSOMNIA [None]
  - LUNG DISORDER [None]
  - SYNCOPE [None]
